FAERS Safety Report 19643784 (Version 4)
Quarter: 2021Q3

REPORT INFORMATION
  Report Type: Report from Study
  Country: US (occurrence: US)
  Receive Date: 20210731
  Receipt Date: 20210908
  Transmission Date: 20211014
  Serious: Yes (Other)
  Sender: FDA-Public Use
  Company Number: NVSC2021US169550

PATIENT
  Age: 71 Year
  Sex: Male

DRUGS (2)
  1. PROMACTA [Suspect]
     Active Substance: ELTROMBOPAG OLAMINE
     Route: 048
  2. PROMACTA [Suspect]
     Active Substance: ELTROMBOPAG OLAMINE
     Indication: PRODUCT USED FOR UNKNOWN INDICATION
     Dosage: 25 MG, QD
     Route: 048
     Dates: start: 20210627, end: 20210708

REACTIONS (5)
  - Platelet count increased [Recovered/Resolved]
  - Platelet count decreased [Unknown]
  - Headache [Unknown]
  - Prostate cancer [Unknown]
  - Cataract [Unknown]

NARRATIVE: CASE EVENT DATE: 20210627
